FAERS Safety Report 9288781 (Version 1)
Quarter: 2013Q2

REPORT INFORMATION
  Report Type: Spontaneous
  Country: US (occurrence: US)
  Receive Date: 20130508
  Receipt Date: 20130508
  Transmission Date: 20140414
  Serious: Yes (Other)
  Sender: FDA-Public Use
  Company Number: US-RB-053267-13

PATIENT
  Age: 25 Year
  Sex: Female

DRUGS (4)
  1. SUBUTEX [Suspect]
     Indication: DRUG DEPENDENCE
     Route: 060
     Dates: start: 2009, end: 20111226
  2. SUBUTEX [Suspect]
     Route: 060
     Dates: start: 20111227
  3. NICOTINE [Concomitant]
     Indication: PRODUCT USED FOR UNKNOWN INDICATION
     Dosage: 1 CIGARETTE PER WEEK
     Route: 055
     Dates: start: 2008
  4. NEONATAL VITAMINS [Concomitant]
     Indication: MEDICAL DIET
     Dosage: DOSING DETAILS UNKNOWN
     Route: 065
     Dates: start: 20111227, end: 20120831

REACTIONS (3)
  - Exposure during pregnancy [Recovered/Resolved]
  - Suppressed lactation [Not Recovered/Not Resolved]
  - Umbilical cord around neck [Recovered/Resolved]
